FAERS Safety Report 25874195 (Version 1)
Quarter: 2025Q4

REPORT INFORMATION
  Report Type: Spontaneous
  Country: CH (occurrence: CH)
  Receive Date: 20251002
  Receipt Date: 20251002
  Transmission Date: 20260118
  Serious: Yes (Hospitalization, Other)
  Sender: PFIZER
  Company Number: None

PATIENT
  Age: 69 Year
  Sex: Male

DRUGS (14)
  1. ALDACTONE [Interacting]
     Active Substance: SPIRONOLACTONE
     Dosage: 25 MG, 1X/DAY
     Route: 048
     Dates: end: 20250826
  2. DIOVAN [Interacting]
     Active Substance: VALSARTAN
     Dosage: 40 MG, 2X/DAY
     Route: 048
     Dates: end: 20250826
  3. BACTRIM [Interacting]
     Active Substance: SULFAMETHOXAZOLE\TRIMETHOPRIM
     Indication: Urosepsis
     Dosage: 1 DF, 2X/DAY
     Route: 048
     Dates: start: 20250822, end: 20250826
  4. TOUJEO [Concomitant]
     Active Substance: INSULIN GLARGINE
     Dosage: UNK
  5. ASPIRIN [Concomitant]
     Active Substance: ASPIRIN
     Dosage: UNK
  6. ATORVASTATIN CALCIUM [Concomitant]
     Active Substance: ATORVASTATIN CALCIUM
     Dosage: UNK
  7. DAFALGAN [Concomitant]
     Active Substance: ACETAMINOPHEN
     Dosage: UNK
  8. CARVEDILOL [Concomitant]
     Active Substance: CARVEDILOL
     Dosage: UNK
  9. JARDIANCE [Concomitant]
     Active Substance: EMPAGLIFLOZIN
     Dosage: UNK
  10. TORSEMIDE [Concomitant]
     Active Substance: TORSEMIDE
     Dosage: UNK
  11. EZETIMIBE ORGANON [Concomitant]
     Dosage: UNK
  12. TAMSULOSIN HYDROCHLORIDE [Concomitant]
     Active Substance: TAMSULOSIN HYDROCHLORIDE
     Dosage: UNK
  13. FIASP [Concomitant]
     Active Substance: INSULIN ASPART
     Dosage: UNK
  14. FRAGMIN [Concomitant]
     Active Substance: DALTEPARIN SODIUM
     Dosage: UNK

REACTIONS (5)
  - Labelled drug-drug interaction issue [Recovering/Resolving]
  - Hyperkalaemia [Recovering/Resolving]
  - Kidney congestion [Recovering/Resolving]
  - Acute kidney injury [Recovering/Resolving]
  - Renal tubular acidosis [Recovering/Resolving]

NARRATIVE: CASE EVENT DATE: 20250826
